FAERS Safety Report 8586323-3 (Version None)
Quarter: 2012Q3

REPORT INFORMATION
  Report Type: 
  Country: None (occurrence: None)
  Receive Date: 20120730
  Receipt Date: 20120718
  Transmission Date: 20120928
  Serious: Yes (Hospitalization)
  Sender: FDA-Public Use
  Company Number: MPS1-1000310

PATIENT
  Age: 15 Year
  Sex: Male
  Weight: 27.5 kg

DRUGS (2)
  1. ALDURAZYME [Suspect]
     Indication: MUCOPOLYSACCHARIDOSIS I
     Dosage: 1.2 MG/KG, D2W, INTRAVENOUS,   2 0.58 MG/KG, QW, INTRAVENOUS
     Route: 042
     Dates: start: 20120113
  2. ALDURAZYME [Suspect]
     Indication: MUCOPOLYSACCHARIDOSIS I
     Dosage: 1.2 MG/KG, D2W, INTRAVENOUS,   2 0.58 MG/KG, QW, INTRAVENOUS
     Route: 042
     Dates: start: 19971011, end: 20090113

REACTIONS (3)
  - SPINAL CORD COMPRESSION [None]
  - BACK PAIN [None]
  - SPINAL CORD DISORDER [None]
